FAERS Safety Report 9097808 (Version 1)
Quarter: 2013Q1

REPORT INFORMATION
  Report Type: Spontaneous
  Country: AU (occurrence: AU)
  Receive Date: 20130212
  Receipt Date: 20130212
  Transmission Date: 20140127
  Serious: Yes (Other)
  Sender: FDA-Public Use
  Company Number: AU-PFIZER INC-2013053985

PATIENT
  Age: 51 Year
  Sex: Male

DRUGS (2)
  1. ATORVASTATIN CALCIUM [Suspect]
     Dosage: 20 MG, DAILY
  2. ATORVASTATIN CALCIUM [Suspect]
     Dosage: 40 MG, DAILY

REACTIONS (2)
  - Hepatitis [Unknown]
  - Myositis [Unknown]
